FAERS Safety Report 7911471 (Version 2)
Quarter: 2013Q1

REPORT INFORMATION
  Report Type: Spontaneous
  Country: DK (occurrence: None)
  Receive Date: 20110331
  Receipt Date: 20121018
  Transmission Date: 20140127
  Serious: Yes (Other)
  Sender: FDA-Public Use
  Company Number: 2011MA002846

PATIENT
  Age: 66 Year
  Sex: Female

DRUGS (5)
  1. PACLITAXEL [Suspect]
     Indication: OVARIAN CANCER
     Dosage: 162 MG; QW; IV
     Route: 042
  2. RANITIDINE [Concomitant]
  3. DEXAMETHASONE [Concomitant]
  4. METOCLOPRAMIDE [Concomitant]
  5. ASA [Concomitant]

REACTIONS (2)
  - Arthralgia [None]
  - Joint swelling [None]
